FAERS Safety Report 4628562-X (Version None)
Quarter: 2005Q2

REPORT INFORMATION
  Report Type: 
  Country: None (occurrence: None)
  Receive Date: 20050404
  Receipt Date: 20050329
  Transmission Date: 20051028
  Serious: Yes (Hospitalization)
  Sender: FDA-Public Use
  Company Number: 2005SE01607

PATIENT
  Age: 56 Year
  Sex: Male

DRUGS (1)
  1. BLOPRESS [Suspect]
     Indication: HYPERTENSION
     Dosage: 2 MG QD PO
     Route: 048

REACTIONS (6)
  - ANTI-HBC IGM ANTIBODY POSITIVE [None]
  - CONDITION AGGRAVATED [None]
  - DECREASED APPETITE [None]
  - HEPATITIS B [None]
  - HEPATITIS CHRONIC PERSISTENT [None]
  - VIRAL INFECTION [None]
